FAERS Safety Report 9000949 (Version 1)
Quarter: 2013Q1

REPORT INFORMATION
  Report Type: Spontaneous
  Country: US (occurrence: None)
  Receive Date: 20130103
  Receipt Date: 20130103
  Transmission Date: 20140127
  Serious: Yes (Other)
  Sender: FDA-Public Use
  Company Number: None

PATIENT
  Sex: Female
  Weight: 63.5 kg

DRUGS (2)
  1. ZYRTEC [Suspect]
     Indication: MULTIPLE ALLERGIES
     Route: 048
     Dates: start: 20040101, end: 20121231
  2. CETIRIZINE HYDROCHLORIDE [Suspect]
     Route: 048
     Dates: start: 20040101, end: 20121231

REACTIONS (8)
  - Drug withdrawal syndrome [None]
  - Urticaria [None]
  - Formication [None]
  - Anxiety [None]
  - Pruritus [None]
  - Scab [None]
  - Disturbance in attention [None]
  - Impaired work ability [None]
